FAERS Safety Report 10034754 (Version 1)
Quarter: 2014Q1

REPORT INFORMATION
  Report Type: Spontaneous
  Country: US (occurrence: None)
  Receive Date: 20140306
  Receipt Date: 20140306
  Transmission Date: 20141002
  Serious: Yes (Other)
  Sender: FDA-Public Use
  Company Number: 163-21880-13074013

PATIENT
  Age: 91 Year
  Sex: Female

DRUGS (26)
  1. REVLIMID [Suspect]
     Indication: 5Q MINUS SYNDROME
     Dosage: 5 MG, 28 IN 28 D, PO
     Route: 048
     Dates: start: 20130628
  2. ACIDOPHILUS (LACTOBACILLUS ACIDOPHILUS) [Concomitant]
  3. GLUCOSAMINE/CHONDROITIN (JORIX) [Concomitant]
  4. TRIPLE OMEGA 3-6-9 (LINUM USITATISSIUM OIL) [Concomitant]
  5. DHEA (PRASTERONE) [Concomitant]
  6. EQL CHILDRENS VITAMIN D G (OTHER VITAMIN PRODUCTS, COMBINATIONS) [Concomitant]
  7. CRAN-MAX (VACCINIUM MACROCAPRON) [Concomitant]
  8. HM VITAMIN B100 COMPLEX (OTHER VITAMIN PRODUCTS COMBINATIONS) [Concomitant]
  9. COQ10 (UBIDECARENONE) [Concomitant]
  10. VITAMIN C (ASCORBIC ACID) [Concomitant]
  11. MULTIVITAMINS (MULTIVITAMINS) [Concomitant]
  12. VITAMIN E (TOCOPHEROL) [Concomitant]
  13. IRON [Concomitant]
  14. ASPIRIN (ACETYLSALICYLIC ACID) [Concomitant]
  15. TYLENOL EXTRA STRENGTH (PARACETAMOL) [Concomitant]
  16. BACITRACIN (BACITRACIN) [Concomitant]
  17. SIMVASTATIN (SIMVASTATIN) [Concomitant]
  18. OMEPRAZOLE (OMEPRAZOLE) [Concomitant]
  19. NEPHROCAPS (NEPHROCAPS) [Concomitant]
  20. CARVEDILOL (CARVEDILOL) [Concomitant]
  21. DONEPEZIL HCL (DONEPEZIL HYDROCHLORIDE) [Concomitant]
  22. AFEDITAB CR (NIFEDIPINE) [Concomitant]
  23. SARNA SENSITIVE (PRAMOCAINE HYDROCHLORIDE) (LOTION FOR OPHTHALMIC USE) [Concomitant]
  24. CRANBERRY (OTHER NUTRIENTS) [Concomitant]
  25. GARLIC (GARLIC) [Concomitant]
  26. ACETYL L-CARNITINE (ACETYLCARNITINE) [Concomitant]

REACTIONS (3)
  - Plasma cell myeloma [None]
  - Thrombocytopenia [None]
  - Haematocrit decreased [None]
